FAERS Safety Report 22127911 (Version 1)
Quarter: 2023Q1

REPORT INFORMATION
  Report Type: Spontaneous
  Country: US (occurrence: US)
  Receive Date: 20230323
  Receipt Date: 20230323
  Transmission Date: 20230418
  Serious: No
  Sender: FDA-Public Use
  Company Number: US-ALLERGAN-2235261US

PATIENT
  Age: 81 Year
  Sex: Female
  Weight: 107.95 kg

DRUGS (2)
  1. LINZESS [Suspect]
     Active Substance: LINACLOTIDE
     Indication: Bowel movement irregularity
     Dosage: UNK, QD
  2. MIRALAX [Concomitant]
     Active Substance: POLYETHYLENE GLYCOL 3350
     Indication: Bowel movement irregularity
     Dosage: UNK

REACTIONS (3)
  - Asthma [Unknown]
  - Gastrointestinal disorder [Recovered/Resolved]
  - Dizziness [Recovered/Resolved]

NARRATIVE: CASE EVENT DATE: 20220601
